FAERS Safety Report 4650036-0 (Version None)
Quarter: 2005Q2

REPORT INFORMATION
  Report Type: 
  Country: None (occurrence: None)
  Receive Date: 20050428
  Receipt Date: 20050418
  Transmission Date: 20051028
  Serious: Yes (Death)
  Sender: FDA-Public Use
  Company Number: 1781-150

PATIENT
  Age: 65 Year
  Sex: Male
  Weight: 104 kg

DRUGS (7)
  1. INDIGO CARMINE 8MG/ML 5ML AMPULE AMERICAN REGENT [Suspect]
     Dosage: 5 ML IV PUSH
     Route: 042
     Dates: start: 20050412
  2. FENTANYL [Concomitant]
  3. SUFENTANIL CITRATE [Concomitant]
  4. ROCURONIUM [Concomitant]
  5. PROPOFOL [Concomitant]
  6. FAMOTIDINE [Concomitant]
  7. PLASMA-LYTE 56 AND DEXTROSE 5% IN PLASTIC CONTAINER [Concomitant]

REACTIONS (6)
  - CARDIAC ARREST [None]
  - HYPOTENSION [None]
  - MYOCARDIAL INFARCTION [None]
  - PROCEDURAL COMPLICATION [None]
  - SINUS ARRHYTHMIA [None]
  - VENTRICULAR TACHYCARDIA [None]
